FAERS Safety Report 5746344-2 (Version None)
Quarter: 2008Q2

REPORT INFORMATION
  Report Type: 
  Country: None (occurrence: None)
  Receive Date: 20080522
  Receipt Date: 20080519
  Transmission Date: 20081010
  Serious: Yes (Hospitalization)
  Sender: FDA-Public Use
  Company Number: PHEH2008US04698

PATIENT
  Age: 75 Year
  Sex: Male
  Weight: 83.9 kg

DRUGS (8)
  1. TEKTURNA [Suspect]
     Indication: HYPERTENSION
     Dosage: 150 MG, QD
     Route: 048
     Dates: start: 20080318, end: 20080414
  2. TEKTURNA [Suspect]
     Dosage: 300 MG, QD
     Route: 048
     Dates: start: 20080415, end: 20080428
  3. PRINIVIL [Concomitant]
     Dosage: 40 MG, QAM
     Route: 048
  4. PRINIVIL [Concomitant]
     Dosage: 60 MG, QPM
  5. ACTOS [Concomitant]
     Dosage: 30 MG, QD
     Route: 048
  6. METFORMIN HCL [Concomitant]
     Dosage: 500 MG, TID
     Route: 048
  7. LASIX [Concomitant]
     Dosage: 40 MG, QD
     Route: 048
  8. LIPITOR [Concomitant]
     Dosage: 20 MG, QD
     Route: 048

REACTIONS (6)
  - BLOOD CREATININE INCREASED [None]
  - BLOOD UREA INCREASED [None]
  - BRADYCARDIA [None]
  - HYPERKALAEMIA [None]
  - HYPOTENSION [None]
  - RENAL FAILURE ACUTE [None]
